FAERS Safety Report 9873980 (Version 2)
Quarter: 2014Q1

REPORT INFORMATION
  Report Type: Other
  Country: US (occurrence: US)
  Receive Date: 20140206
  Receipt Date: 20140206
  Transmission Date: 20141002
  Serious: No
  Sender: FDA-Public Use
  Company Number: US-ACORDA-ACO_35159_2013

PATIENT
  Age: 48 Year
  Sex: Female
  Weight: 76.19 kg

DRUGS (12)
  1. AMPYRA [Suspect]
     Indication: GAIT DISTURBANCE
     Dosage: 10 MG, BID
     Route: 048
     Dates: start: 20130308
  2. ASA [Concomitant]
     Indication: PLATELET DISORDER
     Dosage: 81 UNK, QD
     Route: 048
     Dates: start: 2011
  3. DIAZEPAM [Concomitant]
     Indication: ANXIETY
     Dosage: 7.5 MG, QD
     Route: 048
     Dates: start: 2012
  4. TIZANIDINE [Concomitant]
     Indication: MUSCLE SPASMS
     Dosage: 4 MG, TID
     Route: 048
     Dates: start: 2012
  5. BACLOFEN [Concomitant]
     Indication: MUSCLE SPASMS
     Dosage: 10 MG, TID
     Route: 048
     Dates: start: 2012
  6. TYSABRI [Concomitant]
     Indication: MULTIPLE SCLEROSIS
     Dosage: 300 MG, Q 28 DAYS
     Route: 042
     Dates: start: 201303
  7. SIMVASTATIN [Concomitant]
     Indication: BLOOD CHOLESTEROL INCREASED
     Dosage: 20 MG, QD
     Route: 048
     Dates: start: 2010
  8. PREMPRO [Concomitant]
     Indication: HORMONE REPLACEMENT THERAPY
     Dosage: 0.45 UNK, QD
     Route: 048
     Dates: start: 2000
  9. JANUMET [Concomitant]
     Indication: DIABETES MELLITUS
     Dosage: 1000 MG, (2 PILLS QD)
     Route: 048
     Dates: start: 2010
  10. TRIPLEX [Concomitant]
     Indication: DIABETES MELLITUS
     Dosage: 135 MG, QD
     Route: 048
     Dates: start: 2010
  11. SYNTHROID [Concomitant]
     Indication: THYROID DISORDER
     Dosage: 88 ?G, QD
     Route: 048
     Dates: start: 2000
  12. COZAAR [Concomitant]
     Indication: BLOOD PRESSURE ABNORMAL
     Dosage: 50 MG, (1/2 QD)
     Route: 048
     Dates: start: 2010

REACTIONS (1)
  - Muscle spasms [Recovered/Resolved]
